FAERS Safety Report 8543740 (Version 4)
Quarter: 2012Q4

REPORT INFORMATION
  Report Type: 
  Country: US (occurrence: US)
  Receive Date: 20120503
  Receipt Date: 20120926
  Transmission Date: 20130627
  Serious: Yes (Hospitalization, Other)
  Sender: FDA-Public Use
  Company Number: US-BAYER-2012-042687

PATIENT
  Age: 28 Year
  Sex: Female
  Weight: 129.25 kg

DRUGS (63)
  1. YAZ [Suspect]
     Indication: AMENORRHOEA
     Dosage: UNK
     Route: 048
     Dates: start: 20090828, end: 20100405
  2. YAZ [Suspect]
     Indication: AMENORRHOEA
     Dosage: UNK
     Dates: start: 20090828, end: 201003
  3. SINGULAIR [Concomitant]
     Indication: ASTHMA
     Dosage: 40 mg, QD
     Dates: start: 2007
  4. FLUTICASONE [Concomitant]
     Indication: ASTHMA
     Dosage: 5 mcg, once daily
     Dates: start: 2009
  5. BUPROPION [Concomitant]
     Indication: DEPRESSION
     Dosage: UNK
     Dates: start: 2007
  6. XANAX [Concomitant]
     Indication: ANXIETY
     Dosage: UNK UNK, PRN
     Dates: start: 2007
  7. LEXAPRO [Concomitant]
     Indication: DEPRESSION
     Dosage: 1 pill QD
     Dates: start: 2007
  8. LEXAPRO [Concomitant]
     Indication: ANXIETY
  9. GEODON [Concomitant]
     Indication: SUBSTANCE-INDUCED PSYCHOTIC DISORDER
     Dosage: 80 mg, BID
     Dates: start: 2007
  10. RANITIDINE [Concomitant]
     Indication: GASTROOESOPHAGEAL REFLUX DISEASE
     Dosage: 1 pill QD
     Dates: start: 2007
  11. LYRICA [Concomitant]
     Indication: COMPLEX REGIONAL PAIN SYNDROME
     Dosage: 100 mg, TID
     Dates: start: 2008
  12. LYRICA [Concomitant]
     Indication: PAIN
  13. BACLOFEN [Concomitant]
     Indication: COMPLEX REGIONAL PAIN SYNDROME
     Dosage: 10 mg, 1 X
     Dates: start: 2008
  14. BACLOFEN [Concomitant]
     Indication: PAIN
  15. LIDODERM [Concomitant]
     Indication: COMPLEX REGIONAL PAIN SYNDROME
     Dosage: 5 %, BID
     Dates: start: 2008
  16. LIDODERM [Concomitant]
     Indication: PAIN
  17. MORPHINE [Concomitant]
     Indication: COMPLEX REGIONAL PAIN SYNDROME
     Dosage: UNK, PRN
     Dates: start: 2008
  18. MORPHINE [Concomitant]
     Indication: PAIN
  19. ZOFRAN [Concomitant]
     Indication: COMPLEX REGIONAL PAIN SYNDROME
     Dosage: UNK UNK, PRN
  20. ZOFRAN [Concomitant]
     Indication: PAIN
  21. MIRALAX [Concomitant]
     Indication: CONSTIPATION
     Dosage: UNK UNK, PRN
  22. FEMCON FE [Concomitant]
     Indication: AMENORRHOEA
     Dosage: 1 pill QD
     Dates: start: 20100303
  23. BENZONATATE [Concomitant]
     Indication: ASTHMA
     Dosage: 1 pill QD
     Dates: start: 2010
  24. XOPENEX [Concomitant]
     Indication: ASTHMA
     Dosage: 1 pill QD
     Dates: start: 2010
  25. PROPOXYPHENE NAPSYLATE W/ACETAMINOPHENE [Concomitant]
     Indication: COMPLEX REGIONAL PAIN SYNDROME
     Dosage: ^100-650 T^
     Dates: start: 2010
  26. PROPOXYPHENE NAPSYLATE W/ACETAMINOPHENE [Concomitant]
     Indication: PAIN
  27. FLUCONAZOLE [Concomitant]
     Indication: FUNGAL SKIN INFECTION
     Dosage: 200 mg, QD
     Dates: start: 2010
  28. SYMBICORT [Concomitant]
     Indication: ASTHMA
     Dosage: 160/4.5 mg, 2 puff(s), BID
     Route: 045
     Dates: start: 2007
  29. PILOCARPINE [Concomitant]
     Indication: DRY MOUTH
     Dosage: 1 pill, BID
     Dates: start: 2010
  30. ALBUTEROL [Concomitant]
     Indication: ASTHMA
     Dosage: UNK UNK, PRN
     Dates: start: 2010
  31. ALBUTEROL [Concomitant]
     Indication: ASTHMA
     Dosage: Q6H
  32. IPRATROPIUM [Concomitant]
     Indication: ASTHMA
     Dosage: 0.5/3mg,
     Dates: start: 2010
  33. CROMOLYN [Concomitant]
     Indication: ASTHMA
     Dosage: 20 mg/2, nebulizer
     Dates: start: 2010
  34. OMEPRAZOLE [Concomitant]
     Indication: GASTROOESOPHAGEAL REFLUX DISEASE
     Dosage: 1 pill QD
     Dates: start: 2007, end: 2010
  35. PREDNISONE [Concomitant]
     Indication: ASTHMA
     Dosage: UNK
     Dates: start: 20100326
  36. ZYRTEC [Concomitant]
     Dosage: 10 mg, QD
     Route: 048
     Dates: start: 20100401
  37. DUONEB [Concomitant]
     Dosage: 3 ml, nebulized QAM
     Dates: start: 20100401
  38. COLACE [Concomitant]
     Indication: CONSTIPATION
     Dosage: 100 mg, BID
     Route: 048
     Dates: start: 20100401
  39. COLACE [Concomitant]
     Indication: CONSTIPATION
     Dosage: UNK
     Dates: start: 2007, end: 2012
  40. SUDAFED [Concomitant]
     Dosage: 1, BID
     Route: 048
     Dates: start: 20100401
  41. CITRACAL [Concomitant]
     Dosage: 600 mg, BID
     Route: 048
     Dates: start: 20100401
  42. PRIALT [Concomitant]
     Dosage: via intrathecal infusion pump
     Route: 037
     Dates: start: 20100401
  43. DIFLUCAN [Concomitant]
     Indication: CANDIDIASIS
  44. ZITHROMAX [Concomitant]
  45. MEDROL [Concomitant]
     Indication: ASTHMA
  46. SOLU-MEDROL [Concomitant]
     Dosage: 125 mg, every 6 hours
     Route: 042
  47. LEVAQUIN [Concomitant]
     Dosage: 750 mg, QD
     Route: 042
  48. POTASSIUM [Concomitant]
     Dosage: UNK
     Dates: start: 2010
  49. NYSTOP [Concomitant]
     Indication: FUNGAL SKIN INFECTION
     Dosage: UNK
     Dates: start: 2010
  50. SMZ-TMP [Concomitant]
     Indication: IMMUNODEFICIENCY COMMON VARIABLE
     Dosage: UNK
     Dates: start: 2010
  51. BENADRYL [Concomitant]
     Indication: IMMUNODEFICIENCY COMMON VARIABLE
     Dosage: UNK UNK, PRN
     Dates: start: 2010
  52. IMMUNOGLOBULINS [Concomitant]
     Indication: IMMUNODEFICIENCY COMMON VARIABLE
     Dosage: UNK
     Dates: start: 2010
  53. NARCOL [Concomitant]
     Dosage: UNK
     Dates: start: 2010
  54. VITAMIN D [Concomitant]
     Indication: HYPOVITAMINOSIS
     Dosage: UNK
     Dates: start: 2010
  55. FOLIC ACID [Concomitant]
     Indication: HYPOVITAMINOSIS
     Dosage: UNK
     Dates: start: 2010
  56. VITAMIN B12 [Concomitant]
     Indication: HYPOVITAMINOSIS
     Dosage: UNK
     Dates: start: 2010
  57. AYR [Concomitant]
     Indication: NASAL DRYNESS
     Route: 045
  58. BUSPIRONE [Concomitant]
     Indication: ANXIETY
     Dosage: UNK
     Dates: start: 2010
  59. CALCIUM [Concomitant]
  60. MULTI-VITAMIN [Concomitant]
  61. CEFDINIR [Concomitant]
     Indication: ASTHMA
     Dosage: 300 mg, UNK
     Dates: start: 2010
  62. NSAID^S [Concomitant]
  63. ANTIBIOTICS [Concomitant]

REACTIONS (18)
  - Pulmonary embolism [Recovered/Resolved]
  - Deep vein thrombosis [Recovered/Resolved]
  - Injury [Recovered/Resolved]
  - Pain [None]
  - Pain in extremity [Recovered/Resolved]
  - Oedema peripheral [Recovered/Resolved]
  - Chest pain [Recovered/Resolved]
  - Dyspnoea [Recovered/Resolved]
  - Abdominal pain [None]
  - Epistaxis [None]
  - Procedural site reaction [None]
  - Thrombophlebitis superficial [None]
  - Cardiac disorder [None]
  - Pulmonary hypertension [None]
  - Nausea [None]
  - Subcutaneous haematoma [None]
  - Subcutaneous abscess [None]
  - Oedema peripheral [None]
